FAERS Safety Report 9703673 (Version 2)
Quarter: 2013Q4

REPORT INFORMATION
  Report Type: Spontaneous
  Country: US (occurrence: US)
  Receive Date: 20131122
  Receipt Date: 20131205
  Transmission Date: 20140711
  Serious: No
  Sender: FDA-Public Use
  Company Number: US-PFIZER INC-2013333442

PATIENT
  Sex: Male

DRUGS (2)
  1. CELEBREX [Suspect]
     Indication: ARTHRITIS
     Dosage: 200 MG, 1X/DAY
     Dates: start: 201311
  2. TRAMADOL [Suspect]
     Indication: ARTHRITIS
     Dosage: UNK

REACTIONS (1)
  - Drug effect incomplete [Unknown]
